FAERS Safety Report 8502535-9 (Version None)
Quarter: 2012Q3

REPORT INFORMATION
  Report Type: 
  Country: None (occurrence: None)
  Receive Date: 20120711
  Receipt Date: 20120629
  Transmission Date: 20120928
  Serious: Yes (Other)
  Sender: FDA-Public Use
  Company Number: JP-ELI_LILLY_AND_COMPANY-JP201205005873

PATIENT
  Sex: Male
  Weight: 46 kg

DRUGS (5)
  1. SENNARIDE [Concomitant]
     Dosage: UNK
     Route: 048
     Dates: start: 20120329
  2. MAGNESIUM OXIDE [Concomitant]
  3. ROHYPNOL [Concomitant]
     Dosage: UNK
     Route: 048
     Dates: start: 20120329
  4. NITRAZEPAM [Concomitant]
     Dosage: UNK
     Route: 048
     Dates: start: 20120329
  5. ZYPREXA [Suspect]
     Indication: SCHIZOPHRENIA
     Dosage: 20 MG, QD
     Route: 048
     Dates: end: 20120521

REACTIONS (3)
  - MYELODYSPLASTIC SYNDROME [None]
  - POLYDIPSIA [None]
  - PARKINSONISM [None]
